FAERS Safety Report 23295563 (Version 2)
Quarter: 2024Q2

REPORT INFORMATION
  Report Type: Spontaneous
  Country: AE (occurrence: None)
  Receive Date: 20231214
  Receipt Date: 20240508
  Transmission Date: 20240716
  Serious: Yes (Hospitalization)
  Sender: FDA-Public Use
  Company Number: AE-ROCHE-3472560

PATIENT
  Age: 41 Year
  Sex: Female

DRUGS (1)
  1. MABTHERA [Suspect]
     Active Substance: RITUXIMAB
     Indication: Myasthenia gravis
     Route: 065

REACTIONS (5)
  - Myasthenia gravis [Unknown]
  - Dysarthria [Unknown]
  - Fatigue [Unknown]
  - Muscular weakness [Unknown]
  - Off label use [Unknown]

NARRATIVE: CASE EVENT DATE: 20180101
